FAERS Safety Report 7019371-5 (Version None)
Quarter: 2010Q3

REPORT INFORMATION
  Report Type: 
  Country: None (occurrence: None)
  Receive Date: 20100928
  Receipt Date: 20100913
  Transmission Date: 20110219
  Serious: No
  Sender: FDA-Public Use
  Company Number: US-BIOGENIDEC-2010BI032159

PATIENT
  Age: 69 Year
  Sex: Female

DRUGS (1)
  1. TYSABRI [Suspect]
     Indication: MULTIPLE SCLEROSIS
     Route: 042
     Dates: start: 20091211

REACTIONS (5)
  - DRUG INEFFECTIVE [None]
  - FALL [None]
  - LOSS OF CONTROL OF LEGS [None]
  - POLLAKIURIA [None]
  - URINARY INCONTINENCE [None]
